FAERS Safety Report 4704652-8 (Version None)
Quarter: 2005Q2

REPORT INFORMATION
  Report Type: 
  Country: None (occurrence: None)
  Receive Date: 20050629
  Receipt Date: 20050616
  Transmission Date: 20051028
  Serious: Yes (Hospitalization)
  Sender: FDA-Public Use
  Company Number: DSA_26681_2005

PATIENT
  Sex: Female

DRUGS (3)
  1. ENALAPRIL MALEATE [Suspect]
     Dosage: PO
     Dates: start: 19950101
  2. PLAQUENIL [Concomitant]
  3. ACTONEL [Concomitant]

REACTIONS (2)
  - CONDITION AGGRAVATED [None]
  - PSORIASIS [None]
